FAERS Safety Report 5503548-1 (Version None)
Quarter: 2007Q4

REPORT INFORMATION
  Report Type: 
  Country: None (occurrence: None)
  Receive Date: 20071029
  Receipt Date: 20071012
  Transmission Date: 20080405
  Serious: Yes (Life-Threatening)
  Sender: FDA-Public Use
  Company Number: GXKR2007CA08828

PATIENT
  Age: 11 Year
  Sex: Male

DRUGS (9)
  1. FLUCONAZOLE [Suspect]
     Indication: CANDIDIASIS
     Dosage: 150 MG, Q12H, INTRAVENOUS
     Route: 042
  2. AMIODARONE HCL [Suspect]
     Dosage: 5 MG/KG, INTRAVENOUS
     Route: 042
  3. FUROSEMIDE [Suspect]
  4. MEROPENEM (MEROPENEM) [Concomitant]
  5. MIDAZOLAM HCL [Concomitant]
  6. LORAZEPAM [Concomitant]
  7. CHLORAL HYDRATE (CHLORAL HYDRATE) [Concomitant]
  8. ACETAMINOPHEN [Concomitant]
  9. IBUPROFEN [Concomitant]

REACTIONS (7)
  - DRUG INTERACTION [None]
  - HYPOMAGNESAEMIA [None]
  - PULSE ABSENT [None]
  - RESPIRATORY ACIDOSIS [None]
  - TORSADE DE POINTES [None]
  - VENTRICULAR EXTRASYSTOLES [None]
  - VENTRICULAR TACHYCARDIA [None]
